FAERS Safety Report 10880887 (Version 1)
Quarter: 2015Q1

REPORT INFORMATION
  Report Type: Spontaneous
  Country: US (occurrence: None)
  Receive Date: 20150225
  Receipt Date: 20150225
  Transmission Date: 20150721
  Serious: Yes (Hospitalization)
  Sender: FDA-Public Use
  Company Number: None

PATIENT
  Age: 17 Year
  Sex: Female
  Weight: 82.5 kg

DRUGS (3)
  1. DAUNORUBICIN [Suspect]
     Active Substance: DAUNORUBICIN
     Dates: end: 20140715
  2. VINCRISTINE SULFATE. [Suspect]
     Active Substance: VINCRISTINE SULFATE
     Dates: end: 20140715
  3. PREDNISONE. [Suspect]
     Active Substance: PREDNISONE
     Dates: end: 20140721

REACTIONS (15)
  - Intestinal perforation [None]
  - Enterococcus test positive [None]
  - Pneumonia [None]
  - Tachycardia [None]
  - Pseudomonas test positive [None]
  - Pyrexia [None]
  - Skin discolouration [None]
  - Peripheral coldness [None]
  - Flank pain [None]
  - Blood pressure diastolic decreased [None]
  - Peritoneal fluid analysis abnormal [None]
  - Ileus [None]
  - Pancytopenia [None]
  - Abdominal pain [None]
  - Colitis [None]

NARRATIVE: CASE EVENT DATE: 20140722
